FAERS Safety Report 8374647-4 (Version None)
Quarter: 2012Q2

REPORT INFORMATION
  Report Type: 
  Country: None (occurrence: None)
  Receive Date: 20120521
  Receipt Date: 20120406
  Transmission Date: 20120825
  Serious: No
  Sender: FDA-Public Use
  Company Number: US-ASTRAZENECA-2012SE23700

PATIENT
  Sex: Female

DRUGS (5)
  1. METOLAZONE [Concomitant]
     Dosage: UNKNOWN
  2. WARFARIN SODIUM [Interacting]
     Dosage: UNKNOWN
     Route: 065
  3. COREG [Concomitant]
     Dosage: UNKNOWN
  4. PRILOSEC OTC [Suspect]
     Indication: GASTROOESOPHAGEAL REFLUX DISEASE
     Dosage: 1 TABLET, 1 ONLY
     Route: 048
     Dates: start: 20120406, end: 20120406
  5. FUROSEMIDE [Concomitant]
     Dosage: UNKNOWN

REACTIONS (5)
  - NASAL CONGESTION [None]
  - DYSPNOEA [None]
  - NAUSEA [None]
  - LABELLED DRUG-DRUG INTERACTION MEDICATION ERROR [None]
  - DIZZINESS [None]
